FAERS Safety Report 5728360-X (Version None)
Quarter: 2008Q2

REPORT INFORMATION
  Report Type: 
  Country: None (occurrence: None)
  Receive Date: 20080502
  Receipt Date: 20080502
  Transmission Date: 20081010
  Serious: Yes (Other)
  Sender: FDA-Public Use
  Company Number: None

PATIENT
  Age: 60 Year
  Sex: Male
  Weight: 94.3482 kg

DRUGS (2)
  1. VYTORIN [Suspect]
     Indication: BLOOD CHOLESTEROL INCREASED
     Dosage: ONCE DAILY
     Dates: start: 20080415, end: 20080430
  2. VYTORIN [Suspect]
     Indication: METABOLIC SYNDROME
     Dosage: ONCE DAILY
     Dates: start: 20080415, end: 20080430

REACTIONS (4)
  - ARTHRALGIA [None]
  - HALO VISION [None]
  - VISION BLURRED [None]
  - VISUAL ACUITY REDUCED [None]
